FAERS Safety Report 7815100-3 (Version None)
Quarter: 2011Q4

REPORT INFORMATION
  Report Type: 
  Country: None (occurrence: None)
  Receive Date: 20111014
  Receipt Date: 20111014
  Transmission Date: 20120403
  Serious: Yes (Other)
  Sender: FDA-Public Use
  Company Number: None

PATIENT
  Age: 41 Year
  Sex: Male
  Weight: 71.667 kg

DRUGS (3)
  1. METOPROLOL TARTA [Concomitant]
     Indication: HYPERTENSION
     Dosage: 1 CAPSULE
     Route: 048
     Dates: start: 20110929, end: 20111013
  2. METOPROLOL TARTA [Concomitant]
     Indication: ATRIAL FIBRILLATION
     Dosage: 1 CAPSULE
     Route: 048
     Dates: start: 20110929, end: 20111013
  3. PRADAXA [Suspect]
     Indication: ATRIAL FIBRILLATION
     Dosage: 1 CAPSULE
     Route: 048
     Dates: start: 20110929, end: 20111013

REACTIONS (2)
  - DYSPEPSIA [None]
  - BURNING SENSATION [None]
